FAERS Safety Report 10238095 (Version 1)
Quarter: 2014Q2

REPORT INFORMATION
  Report Type: Spontaneous
  Country: US (occurrence: None)
  Receive Date: 20140613
  Receipt Date: 20140613
  Transmission Date: 20141212
  Serious: Yes (Hospitalization)
  Sender: FDA-Public Use
  Company Number: None

PATIENT
  Age: 67 Year
  Sex: Female

DRUGS (1)
  1. IMBRUVICA [Suspect]
     Dosage: 140 MG, TAKE 4 DAILY  DAILY  ORAL?4/24/2014-PRESENT INTERMITTANTLY
     Route: 048
     Dates: start: 20140424

REACTIONS (1)
  - Investigation [None]
